FAERS Safety Report 16361703 (Version 1)
Quarter: 2019Q3

REPORT INFORMATION
  Report Type: Spontaneous
  Country: US (occurrence: US)
  Receive Date: 20190524
  Receipt Date: 20190524
  Transmission Date: 20191004
  Serious: Yes (Death)
  Sender: FDA-Public Use
  Company Number: None

PATIENT
  Age: 94 Year
  Sex: Male

DRUGS (4)
  1. DOXYCYCL HYC [Concomitant]
  2. OSCAL [Concomitant]
     Active Substance: CALCIUM CARBONATE
  3. SIMVASTATIN. [Concomitant]
     Active Substance: SIMVASTATIN
  4. LUPRON DEPOT [Suspect]
     Active Substance: LEUPROLIDE ACETATE
     Indication: PROSTATE CANCER
     Dosage: ?          OTHER FREQUENCY:Q6M;?
     Route: 030
     Dates: start: 20150825

REACTIONS (1)
  - Death [None]

NARRATIVE: CASE EVENT DATE: 20190113
